FAERS Safety Report 4554364-9 (Version None)
Quarter: 2004Q4

REPORT INFORMATION
  Report Type: 
  Country: None (occurrence: None)
  Receive Date: 20041222
  Receipt Date: 20041116
  Transmission Date: 20050328
  Serious: No
  Sender: FDA-Public Use
  Company Number: 210511

PATIENT
  Age: 57 Year
  Sex: Female

DRUGS (1)
  1. AVASTIN [Suspect]
     Indication: COLON CANCER
     Dosage: 15 MG/M2 INTRAVENOUS
     Route: 042
     Dates: start: 20040921

REACTIONS (1)
  - DYSPNOEA EXACERBATED [None]
